FAERS Safety Report 9399529 (Version 2)
Quarter: 2013Q4

REPORT INFORMATION
  Report Type: Other
  Country: GB (occurrence: GB)
  Receive Date: 20130715
  Receipt Date: 20131210
  Transmission Date: 20140711
  Serious: Yes (Life-Threatening, Hospitalization, Disabling, Other)
  Sender: FDA-Public Use
  Company Number: GB-TARO PHARMACEUTICALS U.S.A., INC-2013SUN01010

PATIENT
  Age: 50 Year
  Sex: Male

DRUGS (1)
  1. CARBAMAZEPINE [Suspect]
     Indication: TRIGEMINAL NEURALGIA
     Dosage: UNK
     Route: 048
     Dates: start: 20130328, end: 20130419

REACTIONS (7)
  - Sepsis [Not Recovered/Not Resolved]
  - Influenza like illness [Unknown]
  - Dermatitis exfoliative [Not Recovered/Not Resolved]
  - Back pain [Unknown]
  - Drug-induced liver injury [Unknown]
  - Pyrexia [Unknown]
  - Rash [Unknown]
